FAERS Safety Report 17267435 (Version 1)
Quarter: 2019Q4

REPORT INFORMATION
  Report Type: Spontaneous
  Country: US (occurrence: US)
  Receive Date: 20191220
  Receipt Date: 20191220
  Transmission Date: 20200122
  Serious: Yes (Death)
  Sender: FDA-Public Use
  Company Number: None

PATIENT
  Age: 58 Year
  Sex: Male

DRUGS (2)
  1. TEMOZOLOMIDE 140MG CAP [Suspect]
     Active Substance: TEMOZOLOMIDE
     Indication: BRAIN NEOPLASM MALIGNANT
     Dosage: DOSE: 1
     Route: 048
     Dates: start: 20190608, end: 20191219
  2. TEMOZOLOMIDE 250MG CAP [Suspect]
     Active Substance: TEMOZOLOMIDE
     Indication: BRAIN NEOPLASM MALIGNANT
     Dosage: DOSE: 1?FREQUENCY: AS DIRECTED
     Route: 048
     Dates: start: 20190608, end: 20191219

REACTIONS (1)
  - Death [None]

NARRATIVE: CASE EVENT DATE: 20191219
